FAERS Safety Report 7903381-7 (Version None)
Quarter: 2011Q4

REPORT INFORMATION
  Report Type: 
  Country: None (occurrence: None)
  Receive Date: 20111107
  Receipt Date: 20111025
  Transmission Date: 20120403
  Serious: Yes (Other)
  Sender: FDA-Public Use
  Company Number: ALK_02041_2011

PATIENT
  Sex: Female
  Weight: 95.2554 kg

DRUGS (4)
  1. XANAX [Concomitant]
  2. VIVITROL [Suspect]
     Indication: ALCOHOLISM
     Dosage: (380 MG 1X/MONTH INTRAMUSCULAR
     Route: 030
     Dates: start: 20110726, end: 20110829
  3. ZOLOFT [Concomitant]
  4. VIVITROL [Suspect]

REACTIONS (6)
  - INJECTION SITE REACTION [None]
  - INJECTION SITE ABSCESS STERILE [None]
  - ANXIETY [None]
  - INJECTION SITE PAIN [None]
  - NECROTISING PANNICULITIS [None]
  - FOREIGN BODY REACTION [None]
